FAERS Safety Report 9856990 (Version 2)
Quarter: 2014Q1

REPORT INFORMATION
  Report Type: Spontaneous
  Country: CN (occurrence: None)
  Receive Date: 20140128
  Receipt Date: 20140314
  Transmission Date: 20141002
  Serious: Yes (Hospitalization)
  Sender: FDA-Public Use
  Company Number: B0956092A

PATIENT
  Age: 58 Year
  Sex: Female

DRUGS (2)
  1. PAROXETINE HYDROCHLORIDE [Suspect]
     Indication: ANXIETY
     Route: 048
     Dates: start: 20131220, end: 20131220
  2. CHINESE MEDICATION [Concomitant]

REACTIONS (5)
  - Angina pectoris [None]
  - Insomnia [None]
  - Tinnitus [None]
  - Listless [None]
  - Asthenia [None]
